FAERS Safety Report 13738687 (Version 2)
Quarter: 2018Q2

REPORT INFORMATION
  Report Type: Report from Study
  Country: US (occurrence: US)
  Receive Date: 20170710
  Receipt Date: 20180627
  Transmission Date: 20180711
  Serious: Yes (Other)
  Sender: FDA-Public Use
  Company Number: US-SAOL THERAPEUTICS-2017SAO00417

PATIENT
  Age: 69 Year
  Sex: Male
  Weight: 74.83 kg

DRUGS (8)
  1. MORPHINE [Suspect]
     Active Substance: MORPHINE
     Dosage: 1.502 MG, \DAY
     Route: 037
     Dates: start: 20160112, end: 20160209
  2. BACLOFEN. [Suspect]
     Active Substance: BACLOFEN
     Dosage: 304.91 ?G, \DAY
     Route: 037
     Dates: start: 20170503
  3. COMPOUNDED BACLOFEN [Suspect]
     Active Substance: BACLOFEN
     Indication: PAIN
     Dosage: 75.10 ?G, \DAY
     Route: 037
     Dates: start: 20160112, end: 20160209
  4. MORPHINE [Suspect]
     Active Substance: MORPHINE
     Dosage: 1.698 MG, \DAY
     Route: 037
     Dates: start: 20160209
  5. MORPHINE [Suspect]
     Active Substance: MORPHINE
     Dosage: 4.495 MG, \DAY
     Route: 037
     Dates: start: 20170329, end: 20170503
  6. COMPOUNDED BACLOFEN [Suspect]
     Active Substance: BACLOFEN
     Dosage: 84.89 ?G, \DAY
     Route: 037
     Dates: start: 20160209
  7. MORPHINE [Suspect]
     Active Substance: MORPHINE
     Dosage: 4.999 MG, \DAY
     Route: 037
     Dates: start: 20170503
  8. BACLOFEN. [Suspect]
     Active Substance: BACLOFEN
     Indication: PAIN
     Dosage: 274.2 ?G, \DAY
     Route: 037
     Dates: start: 20170329, end: 20170503

REACTIONS (6)
  - Pain [Recovered/Resolved]
  - Pain in extremity [Recovered/Resolved]
  - Complication associated with device [Recovered/Resolved]
  - Muscle spasms [Recovered/Resolved]
  - Gait disturbance [Recovered/Resolved]
  - Drug ineffective for unapproved indication [Recovered/Resolved]

NARRATIVE: CASE EVENT DATE: 20160309
